FAERS Safety Report 8184891-7 (Version None)
Quarter: 2012Q1

REPORT INFORMATION
  Report Type: 
  Country: None (occurrence: None)
  Receive Date: 20120305
  Receipt Date: 20120301
  Transmission Date: 20120608
  Serious: Yes (Hospitalization)
  Sender: FDA-Public Use
  Company Number: US-GLAXOSMITHKLINE-A0898807A

PATIENT
  Age: 56 Year
  Sex: Male
  Weight: 79.5 kg

DRUGS (9)
  1. BUSPAR [Concomitant]
  2. CYMBALTA [Concomitant]
  3. PROTONIX [Concomitant]
  4. AVANDIA [Suspect]
     Indication: DIABETES MELLITUS
     Dosage: 4MG TWICE PER DAY
     Route: 048
     Dates: end: 20060825
  5. TENORMIN [Concomitant]
  6. ARICEPT [Concomitant]
  7. LOTREL [Concomitant]
  8. KLONOPIN [Concomitant]
  9. PRAVACHOL [Concomitant]

REACTIONS (3)
  - ATRIAL FIBRILLATION [None]
  - CARDIAC FAILURE CONGESTIVE [None]
  - MYOCARDIAL INFARCTION [None]
